FAERS Safety Report 18060344 (Version 1)
Quarter: 2020Q3

REPORT INFORMATION
  Report Type: Spontaneous
  Country: AU (occurrence: AU)
  Receive Date: 20200723
  Receipt Date: 20200723
  Transmission Date: 20201103
  Serious: Yes (Hospitalization)
  Sender: FDA-Public Use
  Company Number: AU-MYLANLABS-2020M1065830

PATIENT
  Age: 82 Year
  Sex: Female

DRUGS (3)
  1. VITAMIN D                          /00107901/ [Concomitant]
     Active Substance: ERGOCALCIFEROL
     Indication: PRODUCT USED FOR UNKNOWN INDICATION
     Dosage: UNK, QW
     Route: 065
  2. ALENDRONATE [Suspect]
     Active Substance: ALENDRONATE SODIUM
     Indication: PRODUCT USED FOR UNKNOWN INDICATION
     Dosage: 70 MILLIGRAM, QW, A WHITE, OVAL?SHAPED TABLET
     Route: 048
  3. CALCIUM [Concomitant]
     Active Substance: CALCIUM
     Indication: PRODUCT USED FOR UNKNOWN INDICATION
     Dosage: UNK, QW
     Route: 065

REACTIONS (15)
  - Gastric volvulus [Recovering/Resolving]
  - Pleural effusion [Recovering/Resolving]
  - Mediastinitis [Recovering/Resolving]
  - Mucosal ulceration [Recovering/Resolving]
  - Ileus [Recovering/Resolving]
  - Atrial fibrillation [Recovering/Resolving]
  - Acute kidney injury [Recovering/Resolving]
  - Cardiac disorder [Recovering/Resolving]
  - Peritonitis [Recovering/Resolving]
  - Physical deconditioning [Recovering/Resolving]
  - Gastric perforation [Recovering/Resolving]
  - Malnutrition [Recovering/Resolving]
  - Condition aggravated [Recovering/Resolving]
  - Atelectasis [Recovering/Resolving]
  - Delirium [Recovering/Resolving]
